FAERS Safety Report 10667561 (Version 3)
Quarter: 2018Q2

REPORT INFORMATION
  Report Type: Spontaneous
  Country: US (occurrence: US)
  Receive Date: 20141222
  Receipt Date: 20180522
  Transmission Date: 20180711
  Serious: Yes (Other)
  Sender: FDA-Public Use
  Company Number: US-PFIZER INC-2014351355

PATIENT
  Age: 67 Year
  Sex: Male

DRUGS (1)
  1. LYRICA [Suspect]
     Active Substance: PREGABALIN
     Dosage: UNK
     Dates: start: 2008

REACTIONS (5)
  - Dizziness [Unknown]
  - Drug ineffective [Unknown]
  - Major depression [Unknown]
  - Weight increased [Unknown]
  - Post-traumatic stress disorder [Unknown]
